FAERS Safety Report 6719416-3 (Version None)
Quarter: 2010Q2

REPORT INFORMATION
  Report Type: 
  Country: None (occurrence: None)
  Receive Date: 20100507
  Receipt Date: 20100427
  Transmission Date: 20101027
  Serious: Yes (Hospitalization)
  Sender: FDA-Public Use
  Company Number: 2010SP024086

PATIENT
  Age: 29 Year
  Sex: Male
  Weight: 70.3075 kg

DRUGS (15)
  1. PEG-INTRON [Suspect]
     Indication: HEPATITIS C
     Dosage: 120 MCG;SC
     Route: 058
     Dates: start: 20091124, end: 20100419
  2. REBETOL [Suspect]
     Indication: HEPATITIS C
     Dosage: 1000 MG;PO
     Route: 047
     Dates: start: 20091124, end: 20100423
  3. REMICADE [Suspect]
     Indication: HEPATITIS C
     Dosage: 393.18 MG;IV
     Route: 042
     Dates: start: 20091124, end: 20100111
  4. BUSPAR [Concomitant]
  5. FLEXERIL [Concomitant]
  6. ACYCLOVIR [Concomitant]
  7. AMLACTIN [Concomitant]
  8. ATIVAN [Concomitant]
  9. ULTRAM [Concomitant]
  10. MOTRIN [Concomitant]
  11. PERCOCET [Concomitant]
  12. KEFLEX [Concomitant]
  13. KLONOPIN [Concomitant]
  14. CELEXA [Concomitant]
  15. MODAFINIL [Concomitant]

REACTIONS (1)
  - DRUG ABUSE [None]
